FAERS Safety Report 25770809 (Version 1)
Quarter: 2025Q3

REPORT INFORMATION
  Report Type: Spontaneous
  Country: US (occurrence: US)
  Receive Date: 20250908
  Receipt Date: 20250908
  Transmission Date: 20251021
  Serious: Yes (Hospitalization, Other)
  Sender: MELINTA THERAPEUTICS
  Company Number: US-MELINTA THERAPEUTICS, LLC-US-MLNT-25-00219

PATIENT

DRUGS (2)
  1. METOPROLOL SUCCINATE [Suspect]
     Active Substance: METOPROLOL SUCCINATE
     Indication: Atrioventricular block
  2. BREZTRI [Suspect]
     Active Substance: BUDESONIDE\FORMOTEROL\GLYCOPYRROLATE
     Indication: Product used for unknown indication
     Dates: start: 2025

REACTIONS (12)
  - Cardiac disorder [Unknown]
  - Dyspnoea [Unknown]
  - Body height decreased [Unknown]
  - Arthritis [Unknown]
  - Emphysema [Unknown]
  - Bronchitis chronic [Unknown]
  - Bronchial disorder [Unknown]
  - Candida infection [Unknown]
  - Dysphonia [Unknown]
  - Vomiting [Unknown]
  - Nausea [Unknown]
  - Off label use [Unknown]
